FAERS Safety Report 7228533-3 (Version None)
Quarter: 2011Q1

REPORT INFORMATION
  Report Type: 
  Country: None (occurrence: None)
  Receive Date: 20110117
  Receipt Date: 20110105
  Transmission Date: 20110831
  Serious: Yes (Hospitalization)
  Sender: FDA-Public Use
  Company Number: US-BIOGENIDEC-2011BI000746

PATIENT
  Age: 40 Year
  Sex: Female

DRUGS (3)
  1. AMPYRA [Concomitant]
     Indication: GAIT DISTURBANCE
  2. AVONEX [Concomitant]
     Indication: MULTIPLE SCLEROSIS
     Route: 030
     Dates: start: 20000201
  3. TYSABRI [Suspect]
     Indication: MULTIPLE SCLEROSIS
     Route: 042
     Dates: start: 20080319

REACTIONS (1)
  - CONVULSION [None]
